FAERS Safety Report 6409919-3 (Version None)
Quarter: 2009Q4

REPORT INFORMATION
  Report Type: 
  Country: None (occurrence: None)
  Receive Date: 20091022
  Receipt Date: 20091013
  Transmission Date: 20100525
  Serious: Yes (Other)
  Sender: FDA-Public Use
  Company Number: FR-BRISTOL-MYERS SQUIBB COMPANY-14824114

PATIENT
  Sex: Male

DRUGS (2)
  1. ERBITUX [Suspect]
     Indication: HEAD AND NECK CANCER
     Route: 042
  2. RADIOTHERAPY [Suspect]
     Indication: HEAD AND NECK CANCER

REACTIONS (2)
  - ENCEPHALOPATHY [None]
  - MALNUTRITION [None]
